FAERS Safety Report 9733972 (Version 2)
Quarter: 2013Q4

REPORT INFORMATION
  Report Type: Report from Study
  Country: US (occurrence: US)
  Receive Date: 20131205
  Receipt Date: 20131218
  Transmission Date: 20140711
  Serious: Yes (Hospitalization, Other)
  Sender: FDA-Public Use
  Company Number: PHEH2013US025165

PATIENT
  Sex: Male

DRUGS (1)
  1. TOBI [Suspect]
     Indication: PNEUMONIA
     Dosage: UNK UKN, BID
     Route: 055
     Dates: start: 20131115

REACTIONS (2)
  - Chronic obstructive pulmonary disease [Unknown]
  - Pseudomonas infection [Unknown]
